FAERS Safety Report 9819133 (Version 2)
Quarter: 2014Q1

REPORT INFORMATION
  Report Type: Spontaneous
  Country: NO (occurrence: NO)
  Receive Date: 20140115
  Receipt Date: 20140203
  Transmission Date: 20141002
  Serious: Yes (Hospitalization)
  Sender: FDA-Public Use
  Company Number: NO-ASTRAZENECA-2014SE01136

PATIENT
  Age: 18296 Day
  Sex: Female

DRUGS (3)
  1. SYMBICORT TURBUHALER [Suspect]
     Indication: ASTHMA
     Dosage: 160/4.5 MCG, 2 DF BID
     Route: 055
     Dates: start: 2008, end: 20131221
  2. EVIANA [Concomitant]
     Indication: HORMONE REPLACEMENT THERAPY
     Route: 048
  3. CETIRIZINE [Concomitant]
     Indication: HYPERSENSITIVITY
     Route: 048

REACTIONS (3)
  - Non-cardiac chest pain [Recovered/Resolved]
  - Bronchospasm [Recovered/Resolved]
  - Palpitations [Recovered/Resolved]
